FAERS Safety Report 6340108-7 (Version None)
Quarter: 2009Q3

REPORT INFORMATION
  Report Type: 
  Country: None (occurrence: None)
  Receive Date: 20090902
  Receipt Date: 20090819
  Transmission Date: 20100115
  Serious: Yes (Hospitalization, Other)
  Sender: FDA-Public Use
  Company Number: CIP09001781

PATIENT
  Age: 80 Year
  Sex: Male
  Weight: 83.9 kg

DRUGS (4)
  1. ASACOL [Suspect]
     Indication: COLITIS ULCERATIVE
     Dosage: ORAL
     Route: 048
     Dates: start: 20090301, end: 20090101
  2. SULFASALAZINE [Suspect]
     Indication: COLITIS ULCERATIVE
     Dosage: ORAL
     Route: 048
     Dates: start: 19850101, end: 20090301
  3. LIPITOR [Concomitant]
  4. FLOMAX /01280302/ (TAMSULOSIN HYDROCHLORIDE) [Concomitant]

REACTIONS (2)
  - EMPHYSEMA [None]
  - PULMONARY FIBROSIS [None]
